FAERS Safety Report 17885600 (Version 1)
Quarter: 2020Q2

REPORT INFORMATION
  Report Type: Report from Study
  Country: CO (occurrence: CO)
  Receive Date: 20200611
  Receipt Date: 20200611
  Transmission Date: 20200714
  Serious: Yes (Hospitalization, Other)
  Sender: FDA-Public Use
  Company Number: CO-ASTELLAS-2020US019680

PATIENT
  Sex: Female
  Weight: 48 kg

DRUGS (2)
  1. TACROLIMUS. [Suspect]
     Active Substance: TACROLIMUS
     Indication: RENAL TRANSPLANT
     Dosage: 10 MG, ONCE DAILY (2 CAPSULES OF 5 MG)
     Route: 065
     Dates: start: 20191206
  2. MYCOPHENOLATE [Concomitant]
     Active Substance: MYCOPHENOLIC ACID
     Indication: PRODUCT USED FOR UNKNOWN INDICATION
     Dosage: UNK UNK, UNKNOWN FREQ.
     Route: 065

REACTIONS (3)
  - Cytomegalovirus infection [Unknown]
  - Secondary immunodeficiency [Unknown]
  - Blood creatinine increased [Recovering/Resolving]
